FAERS Safety Report 7964543-6 (Version None)
Quarter: 2011Q4

REPORT INFORMATION
  Report Type: 
  Country: None (occurrence: None)
  Receive Date: 20111206
  Receipt Date: 20110413
  Transmission Date: 20120403
  Serious: Yes (Other)
  Sender: FDA-Public Use
  Company Number: DSM-2011-01018

PATIENT
  Age: 67 Year
  Sex: Female
  Weight: 54.8 kg

DRUGS (9)
  1. SERENASE (LORAZEPAM) [Concomitant]
  2. ACETYLSALICYLIC ACID SRT [Concomitant]
  3. INFLUVAC S H09 (INFLUENZA VACCINE INACTIVATED) [Concomitant]
  4. ZANTAC [Concomitant]
  5. CLOZAN (CLOTIAZEPAM) [Concomitant]
  6. AMLODIPINE BESYLATE AND OLMESARTAN MEDOXOMIL [Suspect]
     Indication: HYPERTENSION
     Dosage: 20/5MG (1 IN 1 D), ORAL
     Route: 048
     Dates: start: 20100316, end: 20101213
  7. LEVOTHYROXINE SODIUM [Concomitant]
  8. CRESTOR [Concomitant]
  9. D-CURE (COLECALCIFEROL) [Concomitant]

REACTIONS (2)
  - OEDEMA PERIPHERAL [None]
  - DYSPNOEA [None]
